FAERS Safety Report 7031304-4 (Version None)
Quarter: 2010Q4

REPORT INFORMATION
  Report Type: 
  Country: None (occurrence: None)
  Receive Date: 20101006
  Receipt Date: 20101001
  Transmission Date: 20110411
  Serious: Yes (Other)
  Sender: FDA-Public Use
  Company Number: D0068775A

PATIENT
  Age: 76 Year
  Sex: Male

DRUGS (2)
  1. REQUIP [Suspect]
     Indication: PARKINSON'S DISEASE
     Dosage: .5MG THREE TIMES PER DAY
     Route: 048
     Dates: start: 20100801
  2. REQUIP [Concomitant]
     Indication: PARKINSON'S DISEASE
     Route: 048
     Dates: end: 20100701

REACTIONS (3)
  - DRUG ADMINISTRATION ERROR [None]
  - PARKINSON'S DISEASE [None]
  - UNDERDOSE [None]
